FAERS Safety Report 4327698-0 (Version None)
Quarter: 2004Q1

REPORT INFORMATION
  Report Type: 
  Country: None (occurrence: None)
  Receive Date: 20040325
  Receipt Date: 20040311
  Transmission Date: 20041129
  Serious: Yes (Death, Other)
  Sender: FDA-Public Use
  Company Number: 2004013267

PATIENT
  Age: 3 Month

DRUGS (3)
  1. VIAGRA [Suspect]
     Indication: PULMONARY HYPERTENSION
     Dosage: NASOGASTRIC TUBE
     Route: 045
  2. DIURETICS [Concomitant]
  3. BERAPROST SODIUM (BERAPROST SODIUM) [Concomitant]

REACTIONS (3)
  - CONDITION AGGRAVATED [None]
  - RESPIRATORY DISORDER [None]
  - RESPIRATORY TRACT INFECTION [None]
